FAERS Safety Report 9412749 (Version 1)
Quarter: 2013Q3

REPORT INFORMATION
  Report Type: Report from Study
  Country: US (occurrence: US)
  Receive Date: 20130722
  Receipt Date: 20130722
  Transmission Date: 20140515
  Serious: Yes (Death, Hospitalization)
  Sender: FDA-Public Use
  Company Number: US-JNJFOC-20130710750

PATIENT
  Age: 52 Year
  Sex: Female
  Weight: 58.97 kg

DRUGS (3)
  1. REMICADE [Suspect]
     Indication: RHEUMATOID ARTHRITIS
     Route: 042
  2. REMICADE [Suspect]
     Indication: RHEUMATOID ARTHRITIS
     Route: 042
     Dates: start: 2012
  3. METHOTREXATE [Concomitant]
     Indication: RHEUMATOID ARTHRITIS
     Dosage: 8 PILLS
     Route: 048
     Dates: start: 2012

REACTIONS (3)
  - Pulmonary fibrosis [Fatal]
  - Hospitalisation [Unknown]
  - Drug ineffective [Unknown]
